FAERS Safety Report 9272380 (Version 3)
Quarter: 2013Q2

REPORT INFORMATION
  Report Type: Report from Study
  Country: US (occurrence: US)
  Receive Date: 20130506
  Receipt Date: 20130611
  Transmission Date: 20140414
  Serious: Yes (Hospitalization, Disabling)
  Sender: FDA-Public Use
  Company Number: US-US-EMD SERONO, INC.-7196052

PATIENT
  Age: 65 Year
  Sex: Female
  Weight: 54 kg

DRUGS (6)
  1. REBIF [Suspect]
     Indication: MULTIPLE SCLEROSIS
     Route: 058
  2. REBIF [Suspect]
     Dates: start: 20130225
  3. REBIF [Suspect]
     Route: 058
     Dates: end: 2013
  4. GABAPENTIN [Concomitant]
     Indication: PAIN
  5. LEVOTHYROXINE [Concomitant]
     Indication: THYROID DISORDER
  6. TRAMADOL [Concomitant]
     Indication: PAIN

REACTIONS (7)
  - Cholelithiasis [Recovering/Resolving]
  - Cholecystitis [Recovering/Resolving]
  - Abdominal pain [Not Recovered/Not Resolved]
  - Vomiting [Not Recovered/Not Resolved]
  - Nausea [Not Recovered/Not Resolved]
  - Progressive multiple sclerosis [Not Recovered/Not Resolved]
  - Bladder disorder [Unknown]
